FAERS Safety Report 25697966 (Version 1)
Quarter: 2025Q3

REPORT INFORMATION
  Report Type: Report from Study
  Country: US (occurrence: US)
  Receive Date: 20250819
  Receipt Date: 20250819
  Transmission Date: 20251020
  Serious: No
  Sender: JOHNSON AND JOHNSON
  Company Number: US-JNJFOC-20250800773

PATIENT
  Age: 23 Year
  Sex: Female

DRUGS (2)
  1. STELARA [Suspect]
     Active Substance: USTEKINUMAB
     Indication: Colitis ulcerative
     Route: 058
  2. STELARA [Suspect]
     Active Substance: USTEKINUMAB
     Route: 040
     Dates: start: 20250608

REACTIONS (5)
  - Confusional state [Not Recovered/Not Resolved]
  - Product dose omission issue [Unknown]
  - Device use error [Unknown]
  - Accidental exposure to product [Unknown]
  - Device defective [Unknown]

NARRATIVE: CASE EVENT DATE: 20250731
